FAERS Safety Report 16895934 (Version 1)
Quarter: 2019Q4

REPORT INFORMATION
  Report Type: Spontaneous
  Country: US (occurrence: US)
  Receive Date: 20190814
  Receipt Date: 20190814
  Transmission Date: 20200122
  Serious: Yes (Hospitalization)
  Sender: FDA-Public Use
  Company Number: None

PATIENT
  Age: 34 Year
  Sex: Male

DRUGS (2)
  1. TACROLIMUS 1MG [Suspect]
     Active Substance: TACROLIMUS
     Indication: BONE MARROW TRANSPLANT
     Dosage: 1MG QAM PO
     Route: 048
     Dates: start: 201711
  2. SIROLIMUS 0.5MG [Suspect]
     Active Substance: SIROLIMUS
     Indication: BONE MARROW TRANSPLANT
     Dosage: ?          OTHER DOSE:2 TABS, M, W, F, SUN, 1 TAB TU, THURSA, SAT?
     Route: 048
     Dates: start: 201711

REACTIONS (3)
  - Pneumonia [None]
  - Neutrophil count decreased [None]
  - Nephritis [None]

NARRATIVE: CASE EVENT DATE: 20190701
